FAERS Safety Report 14334354 (Version 1)
Quarter: 2017Q4

REPORT INFORMATION
  Report Type: Spontaneous
  Country: GB (occurrence: GB)
  Receive Date: 20171228
  Receipt Date: 20171228
  Transmission Date: 20180321
  Serious: Yes (Hospitalization)
  Sender: FDA-Public Use
  Company Number: GB-PFIZER INC-2017543736

PATIENT
  Age: 84 Year
  Sex: Female
  Weight: 55 kg

DRUGS (11)
  1. NOVOMIX [Concomitant]
     Active Substance: INSULIN ASPART
     Dosage: UNK
  2. CANDESARTAN CILEXETIL. [Suspect]
     Active Substance: CANDESARTAN CILEXETIL
     Indication: CHRONIC LEFT VENTRICULAR FAILURE
     Dosage: 2 MG, 1X/DAY (IN THE MORNING)
     Route: 048
  3. BUMETANIDE. [Suspect]
     Active Substance: BUMETANIDE
     Indication: CHRONIC LEFT VENTRICULAR FAILURE
     Dosage: 2 MG, 1X/DAY
     Route: 048
  4. ATORVASTATIN [Concomitant]
     Active Substance: ATORVASTATIN
     Dosage: UNK
  5. LEVOTHYROXINE SODIUM. [Concomitant]
     Active Substance: LEVOTHYROXINE SODIUM
     Dosage: UNK
  6. PARACETAMOL [Concomitant]
     Active Substance: ACETAMINOPHEN
     Dosage: UNK
  7. BISOPROLOL FUMARATE. [Suspect]
     Active Substance: BISOPROLOL FUMARATE
     Indication: CHRONIC LEFT VENTRICULAR FAILURE
     Dosage: 3.75 MG, 1X/DAY
     Route: 048
  8. ISOSORBIDE MONONITRATE. [Suspect]
     Active Substance: ISOSORBIDE MONONITRATE
     Indication: ANGINA PECTORIS
     Dosage: 60 MG, 1X/DAY (IN THE MORNING)
     Route: 048
     Dates: end: 20171013
  9. SPIRONOLACTONE. [Suspect]
     Active Substance: SPIRONOLACTONE
     Indication: CHRONIC LEFT VENTRICULAR FAILURE
     Dosage: 25 MG, 1X/DAY (IN THE MORNING)
     Route: 048
  10. GLYCERYL TRINITRATE [Concomitant]
     Active Substance: NITROGLYCERIN
     Dosage: UNK
  11. BETAHISTINE [Concomitant]
     Active Substance: BETAHISTINE
     Dosage: UNK

REACTIONS (3)
  - Orthostatic hypotension [Recovered/Resolved]
  - Balance disorder [Unknown]
  - Dizziness [Unknown]

NARRATIVE: CASE EVENT DATE: 201705
